FAERS Safety Report 5164634-1 (Version None)
Quarter: 2006Q4

REPORT INFORMATION
  Report Type: 
  Country: None (occurrence: None)
  Receive Date: 20061205
  Receipt Date: 20061124
  Transmission Date: 20070319
  Serious: Yes (Hospitalization)
  Sender: FDA-Public Use
  Company Number: GB-AVENTIS-200622100GDDC

PATIENT
  Sex: Female

DRUGS (2)
  1. RIFATER                            /00812001/ [Suspect]
     Dosage: DOSE: UNK
     Dates: start: 20060904
  2. ETHAMBUTOL HYDROCHLORIDE [Concomitant]
     Dosage: DOSE: UNK
     Dates: start: 20060904

REACTIONS (1)
  - PANCREATITIS [None]
